FAERS Safety Report 6594090-8 (Version None)
Quarter: 2010Q1

REPORT INFORMATION
  Report Type: 
  Country: None (occurrence: None)
  Receive Date: 20100222
  Receipt Date: 20100216
  Transmission Date: 20100710
  Serious: Yes (Life-Threatening, Hospitalization)
  Sender: FDA-Public Use
  Company Number: DE-ELI_LILLY_AND_COMPANY-DE201002004415

PATIENT
  Sex: Male

DRUGS (7)
  1. ALIMTA [Suspect]
     Indication: METASTATIC BRONCHIAL CARCINOMA
     Dosage: 50% REDUCED, UNKNOWN
     Route: 042
     Dates: start: 20100106
  2. NOVALGIN [Concomitant]
     Dosage: UNK, UNKNOWN
     Route: 065
  3. MARCUMAR [Concomitant]
     Indication: THROMBOSIS
     Dosage: UNK, UNKNOWN
     Route: 065
  4. LEVOTHYROXINE SODIUM [Concomitant]
     Dosage: UNK, UNKNOWN
     Route: 065
  5. ACE INHIBITOR NOS [Concomitant]
     Dosage: UNK, UNKNOWN
     Route: 065
  6. SIMVASTATIN [Concomitant]
     Dosage: UNK, UNKNOWN
     Route: 065
  7. METFORMIN [Concomitant]
     Dosage: UNK, UNKNOWN
     Route: 065

REACTIONS (5)
  - EPIDERMOLYSIS [None]
  - GENERAL PHYSICAL HEALTH DETERIORATION [None]
  - LEUKOPENIA [None]
  - OFF LABEL USE [None]
  - THROMBOCYTOPENIA [None]
